FAERS Safety Report 7293876-4 (Version None)
Quarter: 2011Q1

REPORT INFORMATION
  Report Type: 
  Country: None (occurrence: None)
  Receive Date: 20110215
  Receipt Date: 20110201
  Transmission Date: 20110831
  Serious: Yes (Other)
  Sender: FDA-Public Use
  Company Number: ES-CELGENEUS-144-21880-11020246

PATIENT
  Age: 71 Year
  Sex: Female

DRUGS (2)
  1. REVLIMID [Suspect]
     Indication: MULTIPLE MYELOMA
     Route: 048
     Dates: start: 20100101, end: 20100801
  2. PREDNISOLONE [Concomitant]
     Route: 065
     Dates: start: 20100101, end: 20100801

REACTIONS (6)
  - BONE DISORDER [None]
  - CARDIAC DISORDER [None]
  - RENAL FAILURE [None]
  - NEUROPATHY PERIPHERAL [None]
  - DIABETES MELLITUS [None]
  - DEEP VEIN THROMBOSIS [None]
